FAERS Safety Report 5758718-4 (Version None)
Quarter: 2008Q2

REPORT INFORMATION
  Report Type: 
  Country: None (occurrence: None)
  Receive Date: 20080604
  Receipt Date: 20080527
  Transmission Date: 20081010
  Serious: Yes (Other)
  Sender: FDA-Public Use
  Company Number: US-GILEAD-2008-0016600

PATIENT
  Sex: Male
  Weight: 127.12 kg

DRUGS (10)
  1. LETAIRIS [Suspect]
     Indication: PULMONARY ARTERIAL HYPERTENSION
     Route: 048
     Dates: start: 20080322, end: 20080522
  2. LETAIRIS [Suspect]
     Indication: CHRONIC OBSTRUCTIVE PULMONARY DISEASE
  3. LASIX [Concomitant]
     Route: 048
  4. THEOPHYLLINE [Concomitant]
     Route: 048
  5. ASPIRIN [Concomitant]
     Route: 048
  6. TETRACYCLINE [Concomitant]
     Route: 048
  7. DIOVAN [Concomitant]
     Route: 048
  8. CITALAPROM [Concomitant]
     Route: 048
  9. TERAZOSIN HCL [Concomitant]
     Route: 048
  10. CENTRUM SILVER [Concomitant]
     Route: 048

REACTIONS (2)
  - CYANOSIS [None]
  - DYSPNOEA [None]
